FAERS Safety Report 5823623-1 (Version None)
Quarter: 2008Q3

REPORT INFORMATION
  Report Type: 
  Country: None (occurrence: None)
  Receive Date: 20080725
  Receipt Date: 20080108
  Transmission Date: 20090109
  Serious: No
  Sender: FDA-Public Use
  Company Number: US-BOEHRINGER INGELHEIM GMBH, GERMANY-2006-BP-11094BP

PATIENT
  Sex: Male

DRUGS (2)
  1. MIRAPEX [Suspect]
     Indication: PARKINSON'S DISEASE
  2. REQUIP [Suspect]
     Indication: PARKINSON'S DISEASE

REACTIONS (2)
  - HYPERPHAGIA [None]
  - PATHOLOGICAL GAMBLING [None]
